FAERS Safety Report 17855222 (Version 3)
Quarter: 2020Q4

REPORT INFORMATION
  Report Type: Spontaneous
  Country: IT (occurrence: IT)
  Receive Date: 20200603
  Receipt Date: 20201218
  Transmission Date: 20210113
  Serious: Yes (Death, Life-Threatening, Hospitalization, Other)
  Sender: FDA-Public Use
  Company Number: IT-PFIZER INC-2020211495

PATIENT
  Age: 58 Year
  Sex: Male

DRUGS (13)
  1. BASILIXIMAB [Suspect]
     Active Substance: BASILIXIMAB
     Indication: IMMUNOSUPPRESSANT DRUG THERAPY
     Dosage: UNK
     Dates: start: 201605, end: 201605
  2. DEXAMETHASONE SODIUM PHOSPHATE. [Suspect]
     Active Substance: DEXAMETHASONE SODIUM PHOSPHATE
     Indication: HAEMOPHAGOCYTIC LYMPHOHISTIOCYTOSIS
     Dosage: UNK, CYCLIC. PROGRESSIVELY TAPERED IN A WAY TO HALVE THE DOSE EVERY 2 WEEKS UNTIL DEFINITIVE SUSPENS
     Dates: start: 2018
  3. DEXAMETHASONE SODIUM PHOSPHATE. [Suspect]
     Active Substance: DEXAMETHASONE SODIUM PHOSPHATE
     Dosage: UNK, CYCLIC, BLOOD TARGET OF 3 NG/ML
     Dates: start: 2018
  4. EVEROLIMUS. [Suspect]
     Active Substance: EVEROLIMUS
     Indication: IMMUNOSUPPRESSANT DRUG THERAPY
     Dosage: 1.25 MG, 2X/DAY, (TARGET, 6 TO 8 NG/ML DURING THE FIRST MONTH, 3 TO 5 NG/ML SUCCESSIVELY)
     Dates: start: 201605, end: 2018
  5. ETOPOSIDE. [Suspect]
     Active Substance: ETOPOSIDE
     Indication: HAEMOPHAGOCYTIC LYMPHOHISTIOCYTOSIS
     Dosage: 100 MG/M2, CYCLIC (2 ADMINISTRATIONS PER WEEK, 7 ADMINISTRATIONS)
     Dates: start: 2018
  6. METHYLPREDNISOLONE SODIUM SUCCINATE. [Suspect]
     Active Substance: METHYLPREDNISOLONE SODIUM SUCCINATE
     Indication: IMMUNOSUPPRESSANT DRUG THERAPY
     Dosage: 500 MG
     Route: 042
     Dates: start: 201605, end: 201605
  7. CICLOSPORIN [Suspect]
     Active Substance: CYCLOSPORINE
     Indication: HAEMOPHAGOCYTIC LYMPHOHISTIOCYTOSIS
     Dosage: UNK
     Dates: start: 2018
  8. RITUXIMAB. [Suspect]
     Active Substance: RITUXIMAB
     Indication: HAEMOPHAGOCYTIC LYMPHOHISTIOCYTOSIS
     Dosage: UNK, CYCLIC (FOR THE FIRST 2 WEEKS, 5 ADMINISTRATIONS)
     Dates: start: 2018
  9. PENTAMIDINE [Concomitant]
     Active Substance: PENTAMIDINE
     Indication: PNEUMOCYSTIS JIROVECII PNEUMONIA
     Dosage: UNK, MONTHLY (PER AEROSOL ONCE PER MONTH)
  10. TACROLIMUS. [Suspect]
     Active Substance: TACROLIMUS
     Indication: IMMUNOSUPPRESSANT DRUG THERAPY
     Dosage: 0.12 MG/KG, 1X/DAY, MAINTENANCE THERAPY TACROLIMUS 0.12 MG/KG/DAY (TARGET, 8 TO 10 NG/ML DURING THE
     Dates: start: 201605, end: 2018
  11. DEXAMETHASONE SODIUM PHOSPHATE. [Suspect]
     Active Substance: DEXAMETHASONE SODIUM PHOSPHATE
     Dosage: 10 MG/M2, CYCLIC (FOR THE FIRST 2 WEEKS)
     Dates: start: 2018, end: 2018
  12. PREDNISONE. [Suspect]
     Active Substance: PREDNISONE
     Indication: IMMUNOSUPPRESSANT DRUG THERAPY
     Dosage: 20 MG, 1X/DAY
     Dates: start: 201605
  13. EVEROLIMUS. [Suspect]
     Active Substance: EVEROLIMUS
     Dosage: UNK
     Dates: start: 2018

REACTIONS (11)
  - Condition aggravated [Fatal]
  - Renal impairment [Not Recovered/Not Resolved]
  - Cytomegalovirus infection [Recovering/Resolving]
  - Hepatosplenomegaly [Recovering/Resolving]
  - Haemophagocytic lymphohistiocytosis [Fatal]
  - Diarrhoea [Recovering/Resolving]
  - Acute kidney injury [Recovering/Resolving]
  - Pancytopenia [Not Recovered/Not Resolved]
  - Epstein-Barr virus infection [Recovering/Resolving]
  - Mucosal inflammation [Unknown]
  - Respiratory failure [Recovering/Resolving]

NARRATIVE: CASE EVENT DATE: 2018
